FAERS Safety Report 15022216 (Version 1)
Quarter: 2018Q2

REPORT INFORMATION
  Report Type: Spontaneous
  Country: US (occurrence: US)
  Receive Date: 20180618
  Receipt Date: 20180618
  Transmission Date: 20180711
  Serious: No
  Sender: FDA-Public Use
  Company Number: US-SA-2018SA155732

PATIENT
  Age: 87 Year
  Sex: Male

DRUGS (2)
  1. ALIROCUMAB [Suspect]
     Active Substance: ALIROCUMAB
     Dosage: 150 UNK
     Route: 058
     Dates: start: 20180126
  2. ALIROCUMAB [Suspect]
     Active Substance: ALIROCUMAB
     Indication: LOW DENSITY LIPOPROTEIN
     Dosage: 75 MG, QOW
     Route: 058

REACTIONS (1)
  - Low density lipoprotein increased [Not Recovered/Not Resolved]
